FAERS Safety Report 9680883 (Version 1)
Quarter: 2013Q4

REPORT INFORMATION
  Report Type: Spontaneous
  Country: US (occurrence: None)
  Receive Date: 20131108
  Receipt Date: 20131108
  Transmission Date: 20140711
  Serious: Yes (Other)
  Sender: FDA-Public Use
  Company Number: None

PATIENT
  Age: 22 Year
  Sex: Male

DRUGS (1)
  1. DAPTOMYCIN [Suspect]
     Indication: LOCALISED INFECTION
     Route: 042
     Dates: start: 20130930, end: 20131107

REACTIONS (3)
  - Pruritus [None]
  - Infusion site pruritus [None]
  - Infusion site urticaria [None]
